FAERS Safety Report 7516856-X (Version None)
Quarter: 2011Q2

REPORT INFORMATION
  Report Type: 
  Country: None (occurrence: None)
  Receive Date: 20110601
  Receipt Date: 20110526
  Transmission Date: 20111010
  Serious: Yes (Hospitalization)
  Sender: FDA-Public Use
  Company Number: DK-GENZYME-FLUD-1000353

PATIENT
  Sex: Male
  Weight: 61 kg

DRUGS (15)
  1. FLUDARA [Suspect]
     Dosage: 60 MG, QD DAY 1-3 EVERY 4 WEEKS, CYCLE 2
     Route: 048
     Dates: start: 20060606, end: 20060608
  2. CYCLOPHOSPHAMIDE [Suspect]
     Dosage: 400 MG, QD DAY 1-3 EVERY 4 WEEKS, CYCLE 3
     Route: 048
     Dates: start: 20060703, end: 20060705
  3. CYCLOPHOSPHAMIDE [Suspect]
     Indication: CHRONIC LYMPHOCYTIC LEUKAEMIA
     Dosage: 450 MG, QD DAY 1-3 EVERY 4 WEEKS, CYCLE 1
     Route: 048
     Dates: start: 20060509, end: 20060511
  4. CYCLOPHOSPHAMIDE [Suspect]
     Dosage: 400 MG, QD DAY 1-3 EVERY 4 WEEKS, CYCLE 5
     Route: 048
     Dates: start: 20060905, end: 20060907
  5. FLUDARA [Suspect]
     Dosage: 60 MG, QD DAY 1-3 EVERY 4 WEEKS, CYCLE 3
     Route: 048
     Dates: start: 20060703, end: 20060705
  6. ANTIBIOTICS [Concomitant]
     Indication: PRODUCT USED FOR UNKNOWN INDICATION
     Dosage: UNK
     Route: 065
  7. FLUDARA [Suspect]
     Dosage: 60 MG, QD DAY 1-3 EVERY 4 WEEKS, CYCLE 4
     Route: 048
     Dates: start: 20060808, end: 20060810
  8. CYCLOPHOSPHAMIDE [Suspect]
     Dosage: 400 MG, QD DAY 1-3 EVERY 4 WEEKS, CYCLE 2
     Route: 048
     Dates: start: 20060606, end: 20060608
  9. FLUDARA [Suspect]
     Indication: CHRONIC LYMPHOCYTIC LEUKAEMIA
     Dosage: 70 MG, QD DAY 1-3 EVERY 4 WEEKS, CYCLE 1
     Route: 048
     Dates: start: 20060509, end: 20060511
  10. FLUDARA [Suspect]
     Dosage: 60 MG, QD DAY 1-3 EVERY 4 WEEKS, CYCLE 5
     Route: 048
     Dates: start: 20060905, end: 20060907
  11. FLUDARA [Suspect]
     Dosage: 60 MG, QD DAY 1-3 EVERY 4 WEEKS, CYCLE 6
     Route: 048
     Dates: start: 20061003, end: 20061005
  12. CYCLOPHOSPHAMIDE [Suspect]
     Dosage: 400 MG, QD DAY 1-3 EVERY 4 WEEKS, CYCLE 6
     Route: 048
     Dates: start: 20061003, end: 20061005
  13. ANALGESICS [Concomitant]
     Indication: PRODUCT USED FOR UNKNOWN INDICATION
     Dosage: UNK
     Route: 065
  14. CYCLOPHOSPHAMIDE [Suspect]
     Dosage: 400 MG, QD DAY 1-3 EVERY 4 WEEKS, CYCLE 4
     Route: 048
     Dates: start: 20060808, end: 20060810
  15. HEPARIN [Concomitant]
     Indication: PRODUCT USED FOR UNKNOWN INDICATION
     Dosage: UNK
     Route: 065

REACTIONS (1)
  - DESMOID TUMOUR [None]
